FAERS Safety Report 9421073 (Version 3)
Quarter: 2013Q3

REPORT INFORMATION
  Report Type: Spontaneous
  Country: US (occurrence: US)
  Receive Date: 20130725
  Receipt Date: 20130819
  Transmission Date: 20140515
  Serious: Yes (Hospitalization)
  Sender: FDA-Public Use
  Company Number: US-GILEAD-2013-0079609

PATIENT
  Sex: Female

DRUGS (5)
  1. LETAIRIS [Suspect]
     Indication: PULMONARY HYPERTENSION
     Dosage: 5 MG, QD
     Route: 048
     Dates: start: 20130705
  2. LETAIRIS [Suspect]
     Indication: SCLERODERMA
  3. REMODULIN [Concomitant]
  4. ADCIRCA [Concomitant]
  5. FLOLAN [Concomitant]

REACTIONS (3)
  - Chest pain [Unknown]
  - Presyncope [Unknown]
  - Dyspnoea [Unknown]
